FAERS Safety Report 11199710 (Version 2)
Quarter: 2015Q2

REPORT INFORMATION
  Report Type: Spontaneous
  Country: US (occurrence: US)
  Receive Date: 20150618
  Receipt Date: 20150624
  Transmission Date: 20150821
  Serious: Yes (Other)
  Sender: FDA-Public Use
  Company Number: US-PFIZER INC-2015201205

PATIENT
  Age: 54 Year
  Sex: Female

DRUGS (1)
  1. PREMARIN [Suspect]
     Active Substance: ESTROGENS, CONJUGATED
     Dosage: UNK
     Dates: start: 1997

REACTIONS (4)
  - Bladder prolapse [Unknown]
  - Intestinal prolapse [Unknown]
  - Vaginal prolapse [Unknown]
  - Rectal prolapse [Unknown]

NARRATIVE: CASE EVENT DATE: 2003
